FAERS Safety Report 5091777-3 (Version None)
Quarter: 2006Q3

REPORT INFORMATION
  Report Type: 
  Country: None (occurrence: None)
  Receive Date: 20060829
  Receipt Date: 20060522
  Transmission Date: 20061208
  Serious: No
  Sender: FDA-Public Use
  Company Number: US-BRISTOL-MYERS SQUIBB COMPANY-13384722

PATIENT
  Age: 80 Year
  Sex: Female

DRUGS (5)
  1. ERBITUX [Suspect]
     Indication: COLON CANCER STAGE IV
     Route: 042
     Dates: start: 20060508, end: 20060508
  2. IRINOTECAN HCL [Concomitant]
     Dates: start: 20060508, end: 20060508
  3. FLUOROURACIL [Concomitant]
     Dates: start: 20060508
  4. COUMADIN [Concomitant]
  5. ARANESP [Concomitant]

REACTIONS (3)
  - CONJUNCTIVITIS ALLERGIC [None]
  - EYELIDS PRURITUS [None]
  - RASH MACULAR [None]
